FAERS Safety Report 16719454 (Version 2)
Quarter: 2019Q3

REPORT INFORMATION
  Report Type: Spontaneous
  Country: US (occurrence: US)
  Receive Date: 20190820
  Receipt Date: 20190827
  Transmission Date: 20191005
  Serious: Yes (Other)
  Sender: FDA-Public Use
  Company Number: US-UNITED THERAPEUTICS-UNT-2019-013554

PATIENT
  Age: 70 Year
  Sex: Male
  Weight: 83.45 kg

DRUGS (1)
  1. REMODULIN [Suspect]
     Active Substance: TREPROSTINIL
     Indication: PULMONARY ARTERIAL HYPERTENSION
     Dosage: 0.010 ?G/KG, CONTINUING
     Route: 058
     Dates: start: 20190808

REACTIONS (3)
  - Product use issue [Unknown]
  - Therapy cessation [Unknown]
  - Suicide attempt [Unknown]

NARRATIVE: CASE EVENT DATE: 201908
